FAERS Safety Report 16660364 (Version 1)
Quarter: 2019Q3

REPORT INFORMATION
  Report Type: Spontaneous
  Country: CA (occurrence: CA)
  Receive Date: 20190802
  Receipt Date: 20190802
  Transmission Date: 20191004
  Serious: Yes (Disabling, Other)
  Sender: FDA-Public Use
  Company Number: CA-JNJFOC-20190623216

PATIENT
  Age: 42 Year
  Sex: Male

DRUGS (1)
  1. TREMFYA [Suspect]
     Active Substance: GUSELKUMAB
     Indication: PSORIASIS
     Dosage: 0, 2 AND THEN 8 WEEKS SUBSEQUENTLY
     Route: 058
     Dates: start: 2019

REACTIONS (6)
  - Malaise [Unknown]
  - Influenza like illness [Unknown]
  - Pharyngeal erythema [Unknown]
  - Oropharyngeal plaque [Unknown]
  - Product dose omission [Unknown]
  - Fatigue [Unknown]
